FAERS Safety Report 6256998-2 (Version None)
Quarter: 2009Q3

REPORT INFORMATION
  Report Type: 
  Country: None (occurrence: None)
  Receive Date: 20090706
  Receipt Date: 20090623
  Transmission Date: 20100115
  Serious: Yes (Other)
  Sender: FDA-Public Use
  Company Number: A0766630A

PATIENT
  Age: 62 Year
  Sex: Female

DRUGS (2)
  1. AVANDIA [Suspect]
     Dosage: 4MG TWICE PER DAY
     Route: 048
     Dates: start: 20000501, end: 20081101
  2. AVANDAMET [Suspect]
     Dosage: 4MG TWICE PER DAY
     Route: 048
     Dates: start: 20060601, end: 20060601

REACTIONS (1)
  - CEREBROVASCULAR ACCIDENT [None]
